FAERS Safety Report 21273442 (Version 1)
Quarter: 2022Q3

REPORT INFORMATION
  Report Type: Spontaneous
  Country: DE (occurrence: DE)
  Receive Date: 20220831
  Receipt Date: 20220831
  Transmission Date: 20221027
  Serious: Yes (Hospitalization, Other)
  Sender: FDA-Public Use
  Company Number: DE-BAYER-2022A121168

PATIENT

DRUGS (1)
  1. EYLEA [Suspect]
     Active Substance: AFLIBERCEPT
     Indication: Product used for unknown indication
     Dosage: SOLUTION FOR INJECTION; STRENGTH: 40MG/ML
     Route: 031

REACTIONS (3)
  - Visual impairment [Recovering/Resolving]
  - Endophthalmitis [Recovering/Resolving]
  - Multiple use of single-use product [Unknown]
